FAERS Safety Report 24013695 (Version 1)
Quarter: 2024Q2

REPORT INFORMATION
  Report Type: Spontaneous
  Country: CN (occurrence: CN)
  Receive Date: 20240626
  Receipt Date: 20240626
  Transmission Date: 20240716
  Serious: Yes (Other)
  Sender: FDA-Public Use
  Company Number: CN-HALEON-2183374

PATIENT
  Age: 25 Year
  Sex: Male
  Weight: 60 kg

DRUGS (2)
  1. VOLTAREN [Suspect]
     Active Substance: DICLOFENAC SODIUM
     Indication: Ankylosing spondylitis
     Dosage: SUSTAINED RELEASE TABLETS
     Route: 048
     Dates: start: 20240511, end: 20240605
  2. ETORICOXIB [Suspect]
     Active Substance: ETORICOXIB
     Indication: Ankylosing spondylitis
     Route: 048
     Dates: start: 20240606, end: 20240607

REACTIONS (1)
  - Melaena [Recovering/Resolving]

NARRATIVE: CASE EVENT DATE: 20240607
